FAERS Safety Report 6045121-5 (Version None)
Quarter: 2009Q1

REPORT INFORMATION
  Report Type: 
  Country: None (occurrence: None)
  Receive Date: 20090121
  Receipt Date: 20090114
  Transmission Date: 20090719
  Serious: Yes (Hospitalization, Other)
  Sender: FDA-Public Use
  Company Number: US-BIOGENIDEC-2008BI018470

PATIENT
  Age: 67 Year
  Sex: Female
  Weight: 107 kg

DRUGS (2)
  1. AVONEX [Suspect]
     Indication: MULTIPLE SCLEROSIS
     Route: 030
     Dates: start: 20010823, end: 20081001
  2. AVONEX [Suspect]
     Route: 030
     Dates: start: 20081001

REACTIONS (5)
  - BRAIN NEOPLASM BENIGN [None]
  - HAEMANGIOBLASTOMA [None]
  - INTRACRANIAL HYPOTENSION [None]
  - MUSCULAR WEAKNESS [None]
  - WOUND INFECTION STAPHYLOCOCCAL [None]
